FAERS Safety Report 25774265 (Version 1)
Quarter: 2025Q3

REPORT INFORMATION
  Report Type: Spontaneous
  Country: US (occurrence: US)
  Receive Date: 20250908
  Receipt Date: 20250908
  Transmission Date: 20251020
  Serious: No
  Sender: VERTEX
  Company Number: US-VERTEX PHARMACEUTICALS-2025-014415

PATIENT

DRUGS (7)
  1. JOURNAVX [Suspect]
     Active Substance: SUZETRIGINE
     Indication: Product used for unknown indication
     Dosage: 2 TABLETS, SINGLE (INITIAL DOSE)
     Route: 048
     Dates: start: 202503, end: 202503
  2. JOURNAVX [Suspect]
     Active Substance: SUZETRIGINE
     Route: 048
     Dates: start: 2025
  3. KETAMINE [Concomitant]
     Active Substance: KETAMINE
  4. OXYCODONE HYDROCHLORIDE [Concomitant]
     Active Substance: OXYCODONE HYDROCHLORIDE
     Dates: start: 202412, end: 202503
  5. TRAMADOL [Concomitant]
     Active Substance: TRAMADOL
     Dates: start: 202506
  6. PERCOCET [Concomitant]
     Active Substance: ACETAMINOPHEN\OXYCODONE HYDROCHLORIDE
     Dates: start: 20250710
  7. HERBALS\MITRAGYNINE [Concomitant]
     Active Substance: HERBALS\MITRAGYNINE
     Dates: start: 20250705

REACTIONS (4)
  - Muscular weakness [Unknown]
  - Nausea [Unknown]
  - Muscle spasms [Unknown]
  - Rash [Unknown]

NARRATIVE: CASE EVENT DATE: 20250101
